FAERS Safety Report 7020217-X (Version None)
Quarter: 2010Q3

REPORT INFORMATION
  Report Type: 
  Country: None (occurrence: None)
  Receive Date: 20100929
  Receipt Date: 20100921
  Transmission Date: 20110219
  Serious: Yes (Other)
  Sender: FDA-Public Use
  Company Number: PHHY2010BR63422

PATIENT
  Sex: Female
  Weight: 68 kg

DRUGS (1)
  1. DIOVAN AMLO [Suspect]
     Indication: HYPERTENSION
     Dosage: 80/5 MG (1 TABLET DAILY)
     Route: 048

REACTIONS (1)
  - FLUID RETENTION [None]
